FAERS Safety Report 14355998 (Version 7)
Quarter: 2021Q3

REPORT INFORMATION
  Report Type: Report from Study
  Country: FR (occurrence: FR)
  Receive Date: 20180105
  Receipt Date: 20210921
  Transmission Date: 20211014
  Serious: Yes (Death, Hospitalization, Other)
  Sender: FDA-Public Use
  Company Number: FR-MYLANLABS-2018M1001031

PATIENT
  Age: 67 Year
  Sex: Male

DRUGS (4)
  1. GEMCITABINE. [Suspect]
     Active Substance: GEMCITABINE
     Indication: LUNG NEOPLASM MALIGNANT
     Dosage: 300 MG, QW
     Route: 042
     Dates: start: 20170512, end: 20170526
  2. NIVOLUMAB [Suspect]
     Active Substance: NIVOLUMAB
     Dosage: 2500 MILLIGRAM, QW
     Route: 065
     Dates: start: 20170616
  3. GEMCITABINE. [Suspect]
     Active Substance: GEMCITABINE
     Dosage: 2500 MILLIGRAM, QW
     Route: 042
     Dates: start: 20170616
  4. NIVOLUMAB [Suspect]
     Active Substance: NIVOLUMAB
     Indication: LUNG NEOPLASM MALIGNANT
     Dosage: 300 MILLIGRAM
     Route: 042
     Dates: start: 20170512, end: 20170526

REACTIONS (14)
  - Pain [Fatal]
  - Malignant neoplasm progression [Fatal]
  - Insomnia [Unknown]
  - Anxiety [Unknown]
  - Asthenia [Unknown]
  - Off label use [Unknown]
  - Neuralgia [Unknown]
  - Confusional state [Fatal]
  - Pleural infection [Fatal]
  - Pleural effusion [Unknown]
  - Oral candidiasis [Unknown]
  - Respiratory disorder [Unknown]
  - General physical health deterioration [Fatal]
  - Lung disorder [Recovered/Resolved]

NARRATIVE: CASE EVENT DATE: 20170609
